FAERS Safety Report 14406258 (Version 6)
Quarter: 2018Q2

REPORT INFORMATION
  Report Type: Report from Study
  Country: US (occurrence: US)
  Receive Date: 20180118
  Receipt Date: 20180514
  Transmission Date: 20180711
  Serious: Yes (Hospitalization, Other)
  Sender: FDA-Public Use
  Company Number: US-GILEAD-2018-0316145

PATIENT
  Age: 70 Year
  Sex: Female

DRUGS (11)
  1. AMBRISENTAN [Suspect]
     Active Substance: AMBRISENTAN
     Indication: PULMONARY ARTERIAL HYPERTENSION
     Dosage: 10 MG, QD
     Route: 065
     Dates: start: 20110110
  2. LEVOTHYROXINE. [Concomitant]
     Active Substance: LEVOTHYROXINE
  3. FUROSEMIDE. [Concomitant]
     Active Substance: FUROSEMIDE
  4. ROCEPHIN [Suspect]
     Active Substance: CEFTRIAXONE SODIUM
     Indication: PRODUCT USED FOR UNKNOWN INDICATION
     Route: 065
  5. ORENITRAM [Concomitant]
     Active Substance: TREPROSTINIL
  6. POTASSIUM [Concomitant]
     Active Substance: POTASSIUM
  7. ADCIRCA [Concomitant]
     Active Substance: TADALAFIL
  8. XARELTO [Concomitant]
     Active Substance: RIVAROXABAN
  9. HYDROCHLOROTHIAZIDE. [Concomitant]
     Active Substance: HYDROCHLOROTHIAZIDE
  10. ERYTHROMYCIN. [Suspect]
     Active Substance: ERYTHROMYCIN
     Indication: PRODUCT USED FOR UNKNOWN INDICATION
     Route: 065
  11. TYVASO [Concomitant]
     Active Substance: TREPROSTINIL

REACTIONS (9)
  - Diverticulitis [Not Recovered/Not Resolved]
  - Acute respiratory failure [Unknown]
  - Influenza [Unknown]
  - Oedema peripheral [Not Recovered/Not Resolved]
  - Cor pulmonale acute [Unknown]
  - Pulmonary arterial hypertension [Unknown]
  - Deep vein thrombosis [Unknown]
  - Thrombosis [Not Recovered/Not Resolved]
  - Drug hypersensitivity [Unknown]
